FAERS Safety Report 14899216 (Version 1)
Quarter: 2018Q2

REPORT INFORMATION
  Report Type: Report from Study
  Country: US (occurrence: US)
  Receive Date: 20180516
  Receipt Date: 20180516
  Transmission Date: 20180711
  Serious: Yes (Hospitalization, Other)
  Sender: FDA-Public Use
  Company Number: US-ROCHE-1911241

PATIENT
  Age: 30 Year
  Sex: Female
  Weight: 63.4 kg

DRUGS (26)
  1. RITUXIMAB. [Suspect]
     Active Substance: RITUXIMAB
     Dosage: START TIME OF INFUSION: 11:23 AND END TIME OF INFUSION: 11:53, INFUSION RATE: 37.5 ML/HR
     Route: 042
     Dates: start: 20170303, end: 20170303
  2. ADALAT CC [Concomitant]
     Active Substance: NIFEDIPINE
     Indication: HYPERTENSION
     Route: 048
     Dates: start: 20170225
  3. NAPROXEN. [Concomitant]
     Active Substance: NAPROXEN
     Indication: SLE ARTHRITIS
     Route: 048
     Dates: start: 201502
  4. RITUXIMAB. [Suspect]
     Active Substance: RITUXIMAB
     Indication: LUPUS NEPHRITIS
     Dosage: AT WEEK 0 AND WEEK 2, DATE OF LAST DOSE (1000 MG) PRIOR TO ONSET OF SAE: 17/MAR/2017.?START TIME OF
     Route: 042
     Dates: start: 20170303, end: 20170303
  5. RITUXIMAB. [Suspect]
     Active Substance: RITUXIMAB
     Dosage: START TIME OF INFUSION: 12:23 AND END TIME OF INFUSION: 12:53?INFUSION RATE: 62.5 ML/HR
     Route: 042
     Dates: start: 20170303, end: 20170303
  6. RITUXIMAB. [Suspect]
     Active Substance: RITUXIMAB
     Dosage: START TIME OF INFUSION: 13:53 AND END TIME OF INFUSION: 14:40,?INFUSION RATE: 100 MG/HR (PER PROTOCO
     Route: 042
     Dates: start: 20170303, end: 20170303
  7. CHOLECALCIFEROL [Concomitant]
     Active Substance: CHOLECALCIFEROL
     Route: 048
     Dates: start: 20170225
  8. WARFARIN [Concomitant]
     Active Substance: WARFARIN
  9. DIPHENHYDRAMINE. [Suspect]
     Active Substance: DIPHENHYDRAMINE
     Indication: LUPUS NEPHRITIS
     Dosage: GIVEN 60 MINUTES (+/- 15 MINUTES) PRIOR TO RITUXIMAB, AT 09:35.
     Route: 048
     Dates: start: 20170303
  10. NEXPLANON [Concomitant]
     Active Substance: ETONOGESTREL
     Indication: CONTRACEPTION
     Route: 058
     Dates: start: 201407, end: 201407
  11. PREDNISONE. [Suspect]
     Active Substance: PREDNISONE
     Indication: LUPUS NEPHRITIS
     Dosage: WEEK 0 AND WEEK 2: 40 MG/DAY; TAPER TO 10 MG/DAY BY WEEK 12.?DATE OF LAST DOSE (35 MG) PRIOR TO ONSE
     Route: 065
  12. FERROUS SULFATE. [Concomitant]
     Active Substance: FERROUS SULFATE
     Indication: ANAEMIA
     Route: 048
     Dates: start: 20170225
  13. CYCLOPHOSPHAMIDE. [Suspect]
     Active Substance: CYCLOPHOSPHAMIDE
     Indication: LUPUS NEPHRITIS
     Dosage: AT WEEK 0 AND WEEK 2. DATE OF LAST DOSE (750 MG) PRIOR TO ONSET OF SAE: 17/MAR/2017.?START TIME OF I
     Route: 042
     Dates: start: 20170303
  14. METHYLPREDNISOLONE SODIUM SUCCINATE. [Suspect]
     Active Substance: METHYLPREDNISOLONE SODIUM SUCCINATE
     Indication: LUPUS NEPHRITIS
     Dosage: WEEK 0 AND WEEK 2. GIVEN 60 MINUTES (+/- 15 MINUTES) PRIOR TO RITUXIMAB, AT 09:50.?DATE OF LAST DOSE
     Route: 042
     Dates: start: 20170303
  15. BELIMUMAB [Suspect]
     Active Substance: BELIMUMAB
     Indication: LUPUS NEPHRITIS
     Dosage: AT WEEKS 4, 6, 8 AND THEN EVERY 4 WEEKS THROUGH WEEK 48
     Route: 042
  16. RITUXIMAB. [Suspect]
     Active Substance: RITUXIMAB
     Dosage: START TIME OF INFUSION: 10:53 AND END TIME OF INFUSION: 11:23.?INFUSION RATE: 25.0 ML/HR
     Route: 042
     Dates: start: 20170303, end: 20170303
  17. PARACETAMOL [Suspect]
     Active Substance: ACETAMINOPHEN
     Indication: LUPUS NEPHRITIS
     Dosage: GIVEN 60 MINUTES (+/- 15 MINUTES) PRIOR TO RITUXIMAB, AT 09:35.
     Route: 048
     Dates: start: 20170303
  18. OMEPRAZOLE. [Concomitant]
     Active Substance: OMEPRAZOLE
     Indication: GASTROOESOPHAGEAL REFLUX DISEASE
     Route: 048
     Dates: start: 20170225
  19. RITUXIMAB. [Suspect]
     Active Substance: RITUXIMAB
     Dosage: START TIME OF INFUSION: 13:23 AND END TIME OF INFUSION: 13:53 ?INFUSION RATE: 87.5 ML/HR
     Route: 042
     Dates: start: 20170303, end: 20170303
  20. PREDNISONE. [Suspect]
     Active Substance: PREDNISONE
     Dosage: CONTINUED TO WEEK 96
     Route: 065
  21. PREDNISONE. [Suspect]
     Active Substance: PREDNISONE
     Dosage: AS CONCOMITANT THERAPY, PRIOR TO START OF STUDY
     Route: 048
     Dates: start: 201507, end: 20170221
  22. CELLCEPT [Concomitant]
     Active Substance: MYCOPHENOLATE MOFETIL\MYCOPHENOLATE MOFETIL HYDROCHLORIDE
     Indication: LUPUS NEPHRITIS
     Route: 048
     Dates: start: 201507, end: 20170221
  23. METHYLPREDNISOLONE. [Concomitant]
     Active Substance: METHYLPREDNISOLONE
     Indication: LUPUS NEPHRITIS
     Route: 042
     Dates: start: 20170222, end: 20170224
  24. RITUXIMAB. [Suspect]
     Active Substance: RITUXIMAB
     Dosage: START TIME OF INFUSION: 11:53 AND END TIME OF INFUSION: 12:23.?INFUSION RATE: 50 MG/HR (PER PROTOCOL
     Route: 042
     Dates: start: 20170303, end: 20170303
  25. RITUXIMAB. [Suspect]
     Active Substance: RITUXIMAB
     Dosage: START TIME OF INFUSION: 12:53 AND END TIME OF INFUSION: 13:23?INFUSION RATE: 75 ML/HR
     Route: 042
     Dates: start: 20170303, end: 20170303
  26. PREDNISONE. [Suspect]
     Active Substance: PREDNISONE
     Dosage: AS CONCOMITANT THERAPY, PRIOR TO START OF STUDY
     Route: 048
     Dates: start: 20170225

REACTIONS (2)
  - Lymphopenia [Recovered/Resolved]
  - Deep vein thrombosis [Recovered/Resolved]

NARRATIVE: CASE EVENT DATE: 20170317
